FAERS Safety Report 8165097-4 (Version None)
Quarter: 2012Q1

REPORT INFORMATION
  Report Type: 
  Country: None (occurrence: None)
  Receive Date: 20120227
  Receipt Date: 20120216
  Transmission Date: 20120608
  Serious: Yes (Other)
  Sender: FDA-Public Use
  Company Number: BR-AMGEN-BRASP2012008023

PATIENT
  Age: 38 Year
  Sex: Female
  Weight: 75 kg

DRUGS (3)
  1. SCOPOLAMINE [Concomitant]
     Dosage: UNK
  2. ENBREL [Suspect]
     Indication: PSORIASIS
     Dosage: 50 MG, ONCE WEEKLY
     Route: 058
     Dates: start: 20111001, end: 20120101
  3. DICLIN [Concomitant]
     Dosage: UNK

REACTIONS (9)
  - VOMITING [None]
  - NAUSEA [None]
  - INJECTION SITE PAIN [None]
  - RHINITIS [None]
  - COUGH [None]
  - VIRAL INFECTION [None]
  - INJECTION SITE ERYTHEMA [None]
  - TOOTH FRACTURE [None]
  - INJECTION SITE PRURITUS [None]
